FAERS Safety Report 6720362-X (Version None)
Quarter: 2010Q2

REPORT INFORMATION
  Report Type: 
  Country: None (occurrence: None)
  Receive Date: 20100511
  Receipt Date: 20100503
  Transmission Date: 20101027
  Serious: Yes (Hospitalization, Other)
  Sender: FDA-Public Use
  Company Number: US-PFIZER INC-2010055951

PATIENT
  Sex: Female
  Weight: 133 kg

DRUGS (2)
  1. DETROL [Suspect]
     Dosage: 4 MG, 2X/DAY
  2. DETROL LA [Suspect]
     Dosage: 4 MG, 2X/DAY

REACTIONS (2)
  - CARDIAC FAILURE CONGESTIVE [None]
  - RESPIRATORY FAILURE [None]
